FAERS Safety Report 9693175 (Version 3)
Quarter: 2014Q1

REPORT INFORMATION
  Report Type: Spontaneous
  Country: DE (occurrence: DE)
  Receive Date: 20131118
  Receipt Date: 20140107
  Transmission Date: 20141002
  Serious: Yes (Hospitalization, Other)
  Sender: FDA-Public Use
  Company Number: DE-NOVOPROD-391844

PATIENT
  Age: 1 Year
  Sex: Male
  Weight: 12.75 kg

DRUGS (7)
  1. NOVOSEVEN [Suspect]
     Indication: HAEMORRHAGE
     Dosage: DAILY DOSE 2 MG/3 MG
     Route: 042
     Dates: start: 20131017
  2. NOVOSEVEN [Suspect]
     Dosage: 3 MG, QD, SINGLE DOSE
     Dates: start: 20131018, end: 20131018
  3. FEIBA [Suspect]
     Indication: HAEMORRHAGE
     Dosage: 500 UNK, QD
     Route: 042
     Dates: start: 20131018, end: 20131018
  4. CEFUROXIM                          /00454602/ [Concomitant]
     Dosage: UNK
     Route: 042
     Dates: start: 20131018
  5. METHYLPREDNISOLONE [Concomitant]
     Dosage: UNK
     Dates: start: 20131017
  6. BIOSTATE                           /00286701/ [Concomitant]
     Indication: PRODUCT USED FOR UNKNOWN INDICATION
     Dosage: UNK
     Route: 042
     Dates: start: 201301, end: 20130903
  7. HAEMATE [Concomitant]
     Dosage: UNK
     Dates: start: 201309, end: 20131017

REACTIONS (1)
  - Cerebrovascular accident [Not Recovered/Not Resolved]
